FAERS Safety Report 5669654-6 (Version None)
Quarter: 2008Q1

REPORT INFORMATION
  Report Type: 
  Country: None (occurrence: None)
  Receive Date: 20080317
  Receipt Date: 20080303
  Transmission Date: 20080703
  Serious: Yes (Other)
  Sender: FDA-Public Use
  Company Number: BR-ROCHE-551494

PATIENT
  Age: 70 Year
  Sex: Female
  Weight: 57 kg

DRUGS (5)
  1. RIVOTRIL [Suspect]
     Indication: INSOMNIA
     Route: 048
     Dates: start: 20070501, end: 20080201
  2. RIVOTRIL [Suspect]
     Dosage: DOSAGE INCREASED
     Route: 048
     Dates: start: 20080201
  3. CRESTOR [Concomitant]
     Route: 048
  4. LASIX [Concomitant]
  5. ABLOK PLUS [Concomitant]
     Indication: BLOOD PRESSURE ABNORMAL
     Dosage: STRENGTH: 50 + 12.5 MG

REACTIONS (10)
  - ALANINE AMINOTRANSFERASE ABNORMAL [None]
  - ALOPECIA [None]
  - AMNESIA [None]
  - ASPARTATE AMINOTRANSFERASE ABNORMAL [None]
  - BLOOD ALKALINE PHOSPHATASE [None]
  - BLOOD BILIRUBIN ABNORMAL [None]
  - DYSARTHRIA [None]
  - GAMMA-GLUTAMYLTRANSFERASE ABNORMAL [None]
  - HEPATIC STEATOSIS [None]
  - LIBIDO DECREASED [None]
